FAERS Safety Report 9363338 (Version 1)
Quarter: 2013Q2

REPORT INFORMATION
  Report Type: Spontaneous
  Country: US (occurrence: None)
  Receive Date: 20130620
  Receipt Date: 20130620
  Transmission Date: 20140414
  Serious: Yes (Death)
  Sender: FDA-Public Use
  Company Number: 20130034

PATIENT
  Age: 51 Year
  Sex: Female

DRUGS (2)
  1. SUBSYS(FENTANYL SUBLINGUAL SPRAY) 400MCG, INSYS THERAPEUTICS [Suspect]
     Indication: NEOPLASM MALIGNANT
     Route: 060
     Dates: start: 20130529, end: 20130606
  2. INTRATHECAL MORPHINE [Concomitant]

REACTIONS (1)
  - Death [None]
